FAERS Safety Report 15741958 (Version 1)
Quarter: 2018Q4

REPORT INFORMATION
  Report Type: Spontaneous
  Country: FR (occurrence: FR)
  Receive Date: 20181219
  Receipt Date: 20181219
  Transmission Date: 20190205
  Serious: Yes (Other)
  Sender: FDA-Public Use
  Company Number: FR-ELI_LILLY_AND_COMPANY-FR201812004556

PATIENT
  Age: 21 Year
  Sex: Female
  Weight: 52 kg

DRUGS (3)
  1. BRINTELLIX [Suspect]
     Active Substance: VORTIOXETINE HYDROBROMIDE
     Indication: DEPRESSION
     Dosage: 10 MG, DAILY
     Route: 048
     Dates: start: 20180320, end: 20180525
  2. BRINTELLIX [Suspect]
     Active Substance: VORTIOXETINE HYDROBROMIDE
     Indication: DEPRESSION
     Dosage: 5 MG, DAILY
     Route: 048
     Dates: start: 20180413, end: 20180525
  3. OLANZAPINE. [Suspect]
     Active Substance: OLANZAPINE
     Indication: PERSONALITY DISORDER
     Dosage: 15 MG, DAILY
     Route: 048
     Dates: start: 201802, end: 20180604

REACTIONS (1)
  - Epilepsy [Recovered/Resolved]

NARRATIVE: CASE EVENT DATE: 20180525
